FAERS Safety Report 19293192 (Version 1)
Quarter: 2021Q2

REPORT INFORMATION
  Report Type: Spontaneous
  Country: US (occurrence: US)
  Receive Date: 20210522
  Receipt Date: 20210522
  Transmission Date: 20210717
  Serious: Yes (Disabling, Other)
  Sender: FDA-Public Use
  Company Number: None

PATIENT
  Age: 3 Year
  Sex: Female
  Weight: 12.6 kg

DRUGS (8)
  1. VITAMIN C [Concomitant]
     Active Substance: ASCORBIC ACID
  2. PROBIOTIC [Concomitant]
     Active Substance: PROBIOTICS NOS
  3. GLUTATHIONE COLOSTRUM [Concomitant]
  4. VITAMIN B12 [Concomitant]
     Active Substance: CYANOCOBALAMIN
  5. NTIRIC OXIDE [Concomitant]
  6. LIVER TINCTURE [Concomitant]
  7. HISTAMINE BALANCER [Concomitant]
  8. BETAMETHASONE VALERATE. [Suspect]
     Active Substance: BETAMETHASONE VALERATE
     Indication: ECZEMA
     Route: 061
     Dates: start: 20201210, end: 20210101

REACTIONS (12)
  - Skin weeping [None]
  - Decreased appetite [None]
  - Insomnia [None]
  - Lymphadenopathy [None]
  - Irritability [None]
  - Erythema [None]
  - Skin exfoliation [None]
  - Malaise [None]
  - Pruritus [None]
  - Dry skin [None]
  - Fatigue [None]
  - Steroid withdrawal syndrome [None]

NARRATIVE: CASE EVENT DATE: 20210101
